FAERS Safety Report 5567873-0 (Version None)
Quarter: 2007Q4

REPORT INFORMATION
  Report Type: 
  Country: None (occurrence: None)
  Receive Date: 20071220
  Receipt Date: 20071210
  Transmission Date: 20080405
  Serious: Yes (Other)
  Sender: FDA-Public Use
  Company Number: US-ELI_LILLY_AND_COMPANY-US200710003644

PATIENT
  Sex: Female

DRUGS (3)
  1. EVISTA [Suspect]
     Dosage: 60 MG, UNK
  2. EVISTA [Suspect]
     Dates: start: 20060601
  3. SYNTHROID [Concomitant]
     Route: 048

REACTIONS (4)
  - BLOOD CHOLESTEROL INCREASED [None]
  - HYPOTENSION [None]
  - MENINGIOMA BENIGN [None]
  - MYOCARDIAL INFARCTION [None]
